FAERS Safety Report 8242133-8 (Version None)
Quarter: 2012Q1

REPORT INFORMATION
  Report Type: 
  Country: None (occurrence: None)
  Receive Date: 20120314
  Receipt Date: 20110615
  Transmission Date: 20120608
  Serious: No
  Sender: FDA-Public Use
  Company Number: PHHY2011US53075

PATIENT
  Sex: Female

DRUGS (1)
  1. FANAPT [Suspect]
     Dosage: UNK, ORAL
     Route: 048
     Dates: start: 20110516, end: 20110519

REACTIONS (1)
  - OEDEMA PERIPHERAL [None]
